FAERS Safety Report 6014763-5 (Version None)
Quarter: 2008Q4

REPORT INFORMATION
  Report Type: 
  Country: None (occurrence: None)
  Receive Date: 20081219
  Receipt Date: 20081217
  Transmission Date: 20090506
  Serious: Yes (Death)
  Sender: FDA-Public Use
  Company Number: GB-WYE-G02802708

PATIENT
  Age: 59 Year
  Sex: Male

DRUGS (3)
  1. RAPAMUNE [Suspect]
     Indication: ANAEMIA
     Route: 048
     Dates: start: 20081030
  2. RAPAMUNE [Suspect]
     Indication: SECONDARY IMMUNODEFICIENCY
  3. PREDNISOLONE [Concomitant]
     Dosage: 5 MG (FREQUENCY UNKNOWN)

REACTIONS (2)
  - DEEP VEIN THROMBOSIS [None]
  - PULMONARY EMBOLISM [None]
